FAERS Safety Report 5894784-3 (Version None)
Quarter: 2008Q3

REPORT INFORMATION
  Report Type: 
  Country: None (occurrence: None)
  Receive Date: 20080924
  Receipt Date: 20080618
  Transmission Date: 20090109
  Serious: No
  Sender: FDA-Public Use
  Company Number: US-ASTRAZENECA-2008UW12280

PATIENT
  Sex: Male

DRUGS (2)
  1. SEROQUEL [Suspect]
     Indication: INSOMNIA
     Dosage: 75 MG TO 150 MG
     Route: 048
  2. AMBIEN [Concomitant]

REACTIONS (1)
  - RAPID EYE MOVEMENTS SLEEP ABNORMAL [None]
